FAERS Safety Report 7669222-0 (Version None)
Quarter: 2011Q3

REPORT INFORMATION
  Report Type: 
  Country: None (occurrence: None)
  Receive Date: 20110808
  Receipt Date: 20110727
  Transmission Date: 20111222
  Serious: Yes (Hospitalization)
  Sender: FDA-Public Use
  Company Number: PHHY2011US48793

PATIENT
  Age: 15 Year
  Sex: Female

DRUGS (2)
  1. TOBI [Suspect]
     Indication: CYSTIC FIBROSIS
     Dosage: 300 MG, BID
     Dates: start: 20071211, end: 20110607
  2. PULMOZYME [Concomitant]
     Dosage: 2.5 MG, QD

REACTIONS (4)
  - HAEMOPTYSIS [None]
  - LUNG DISORDER [None]
  - BACTERIAL INFECTION [None]
  - PANCREATIC INSUFFICIENCY [None]
